FAERS Safety Report 4949531-6 (Version None)
Quarter: 2006Q1

REPORT INFORMATION
  Report Type: 
  Country: None (occurrence: None)
  Receive Date: 20060316
  Receipt Date: 20060308
  Transmission Date: 20060701
  Serious: Yes (Other)
  Sender: FDA-Public Use
  Company Number: 2006BH004971

PATIENT

DRUGS (1)
  1. MORPHINE SULFATE [Suspect]

REACTIONS (2)
  - NAUSEA [None]
  - VOMITING [None]
